FAERS Safety Report 4983669-2 (Version None)
Quarter: 2006Q1

REPORT INFORMATION
  Report Type: 
  Country: None (occurrence: None)
  Receive Date: 20060227
  Receipt Date: 20050125
  Transmission Date: 20060701
  Serious: Yes (Disabling)
  Sender: FDA-Public Use
  Company Number: WAES 0501USA03635

PATIENT
  Age: 56 Year
  Sex: Female
  Weight: 56.246 kg

DRUGS (2)
  1. ZOCOR [Suspect]
     Indication: BLOOD CHOLESTEROL INCREASED
     Dosage: 20 MG,DAILY, PO
     Route: 048
     Dates: start: 20041209, end: 20041217
  2. ZOCOR [Suspect]
     Indication: BLOOD CHOLESTEROL INCREASED
     Dosage: 20 MG,DAILY, PO
     Route: 048
     Dates: start: 20041224, end: 20050105

REACTIONS (1)
  - CONSTIPATION [None]
